FAERS Safety Report 18603334 (Version 1)
Quarter: 2020Q4

REPORT INFORMATION
  Report Type: Other
  Country: CA (occurrence: CA)
  Receive Date: 20201210
  Receipt Date: 20201210
  Transmission Date: 20210114
  Serious: Yes (Other)
  Sender: FDA-Public Use
  Company Number: CA-CELLTRION INC.-2020CA033301

PATIENT

DRUGS (13)
  1. ALENDRONATE SODIUM. [Concomitant]
     Active Substance: ALENDRONATE SODIUM
  2. DIPHENHYDRAMINE. [Concomitant]
     Active Substance: DIPHENHYDRAMINE
     Indication: PREMEDICATION
     Dosage: 50 MILLIGRAM
     Route: 048
  3. METHYLPREDNISOLONE SODIUM SUCCINATE. [Suspect]
     Active Substance: METHYLPREDNISOLONE SODIUM SUCCINATE
     Indication: PREMEDICATION
     Dosage: 100 MILLIGRAM
     Route: 042
  4. MYCOPHENOLATE MOFETIL. [Concomitant]
     Active Substance: MYCOPHENOLATE MOFETIL
  5. PROCYTOX [Concomitant]
     Active Substance: CYCLOPHOSPHAMIDE
  6. AMLODIPINE [Concomitant]
     Active Substance: AMLODIPINE BESYLATE
     Route: 065
  7. MESNA. [Concomitant]
     Active Substance: MESNA
  8. OXYCODONE [Concomitant]
     Active Substance: OXYCODONE
  9. PANTOLOC [PANTOPRAZOLE] [Concomitant]
     Active Substance: PANTOPRAZOLE SODIUM
  10. PREDNISONE. [Concomitant]
     Active Substance: PREDNISONE
  11. RITUXIMAB (UNKNOWN) [Suspect]
     Active Substance: RITUXIMAB
     Indication: GRANULOMATOSIS WITH POLYANGIITIS
     Dosage: 675 MILLIGRAM, 1 EVERY 1 WEEK
     Route: 041
  12. PREGABALIN. [Concomitant]
     Active Substance: PREGABALIN
     Route: 065
  13. ACETAMINOPHEN. [Concomitant]
     Active Substance: ACETAMINOPHEN
     Indication: PREMEDICATION
     Dosage: 650 MILLIGRAM
     Route: 048

REACTIONS (11)
  - Skin wound [Recovered/Resolved]
  - Dermatitis [Recovered/Resolved]
  - Dyspnoea [Recovered/Resolved]
  - Infusion related reaction [Recovered/Resolved]
  - Fatigue [Recovered/Resolved]
  - Sunburn [Recovered/Resolved]
  - Polyp [Recovered/Resolved]
  - Dizziness [Recovered/Resolved]
  - Head injury [Recovered/Resolved]
  - Erythema [Recovered/Resolved]
  - Pain in extremity [Recovered/Resolved]
